FAERS Safety Report 4336232-0 (Version None)
Quarter: 2004Q2

REPORT INFORMATION
  Report Type: 
  Country: None (occurrence: None)
  Receive Date: 20040407
  Receipt Date: 20040324
  Transmission Date: 20050107
  Serious: Yes (Death)
  Sender: FDA-Public Use
  Company Number: EWC040137775

PATIENT
  Age: 73 Year
  Sex: Male
  Weight: 70 kg

DRUGS (6)
  1. HUMATROPE [Suspect]
     Indication: GROWTH HORMONE DEFICIENCY
     Dates: start: 19951121
  2. LEVAXIN (LEVOTHYROXINE SODIUM) [Concomitant]
  3. CORTONE (CORTISONE ACETATE) [Concomitant]
  4. MODURETIC 5-50 [Concomitant]
  5. TESTOVIRON-DEPOT (TESTOSTERONE HEXAHYDROBENZOATE) [Concomitant]
  6. BRICANYL TURBUHALER (TERBUTALINE SULFATE) [Concomitant]

REACTIONS (2)
  - CORONARY ARTERY ATHEROSCLEROSIS [None]
  - SUDDEN CARDIAC DEATH [None]
